FAERS Safety Report 4364283-9 (Version None)
Quarter: 2004Q2

REPORT INFORMATION
  Report Type: 
  Country: None (occurrence: None)
  Receive Date: 20040519
  Receipt Date: 20040514
  Transmission Date: 20050107
  Serious: Yes (Other)
  Sender: FDA-Public Use
  Company Number: US-SHR-04-020468

PATIENT
  Age: 55 Year
  Sex: Male

DRUGS (5)
  1. CAMPATH [Suspect]
     Indication: B-CELL SMALL LYMPHOCYTIC LYMPHOMA
     Dosage: 10 MG, 3X/WEEK
  2. DIPHENHYDRAMINE HCL [Concomitant]
  3. ACETAMINOPHEN [Concomitant]
  4. VALACYCLOVIR HCL [Concomitant]
  5. SULFAMETHOXAZOLE + TRIMETHOPRIM [Concomitant]

REACTIONS (5)
  - EPSTEIN-BARR VIRUS ANTIBODY POSITIVE [None]
  - LUNG NEOPLASM [None]
  - LYMPHOMA [None]
  - PULMONARY MASS [None]
  - PULMONARY NECROSIS [None]
